FAERS Safety Report 9908296 (Version 2)
Quarter: 2014Q1

REPORT INFORMATION
  Report Type: Other
  Country: IE (occurrence: IE)
  Receive Date: 20140219
  Receipt Date: 20140219
  Transmission Date: 20141002
  Serious: Yes (Hospitalization)
  Sender: FDA-Public Use
  Company Number: IE-NAPPMUNDI-GBR-2013-0015989

PATIENT
  Age: 42 Year
  Sex: Female

DRUGS (5)
  1. OXYCODONE HYDROCHLORIDE [Suspect]
     Indication: CANCER PAIN
     Dosage: 100 MG, BID
     Route: 048
  2. HYDROMORPHONE HCL PR CAPSULE 24 MG [Suspect]
     Indication: CANCER PAIN
     Dosage: 24 MG, BID
     Route: 048
  3. PREGABALIN [Concomitant]
     Indication: CANCER PAIN
     Dosage: 150 MG, BID
  4. METHADONE [Concomitant]
     Indication: CANCER PAIN
     Dosage: 10 MG, DAILY
     Route: 065
  5. METHADONE [Concomitant]
     Dosage: 5 MG, DAILY
     Route: 065

REACTIONS (2)
  - Toxicity to various agents [Unknown]
  - Drug ineffective [Unknown]
